FAERS Safety Report 4384659-3 (Version None)
Quarter: 2004Q2

REPORT INFORMATION
  Report Type: 
  Country: None (occurrence: None)
  Receive Date: 20040625
  Receipt Date: 20030922
  Transmission Date: 20050107
  Serious: No
  Sender: FDA-Public Use
  Company Number: US-BRISTOL-MYERS SQUIBB COMPANY-12390068

PATIENT
  Age: 32 Year
  Sex: Female
  Weight: 100 kg

DRUGS (2)
  1. MYCOSTATIN VAGINAL TABS [Suspect]
     Indication: FUNGAL INFECTION
     Route: 067
     Dates: end: 20030901
  2. MACROBID [Concomitant]

REACTIONS (8)
  - ABDOMINAL DISTENSION [None]
  - ABDOMINAL PAIN [None]
  - DIARRHOEA [None]
  - DIZZINESS [None]
  - GASTROINTESTINAL DISORDER [None]
  - NAUSEA [None]
  - VAGINAL BURNING SENSATION [None]
  - VOMITING [None]
